FAERS Safety Report 7121312-7 (Version None)
Quarter: 2010Q4

REPORT INFORMATION
  Report Type: 
  Country: None (occurrence: None)
  Receive Date: 20101119
  Receipt Date: 20101119
  Transmission Date: 20110411
  Serious: No
  Sender: FDA-Public Use
  Company Number: None

PATIENT
  Age: 63 Year
  Sex: Male

DRUGS (1)
  1. WARFARIN SODIUM [Suspect]
     Dosage: 4MG 6 DAYS WEEKLY AND 2 MG 1 DAY A WEEK, PT HAS BEEN ON THIS DOSE FOR AT LEAST 3 YEARS

REACTIONS (2)
  - INTERNATIONAL NORMALISED RATIO INCREASED [None]
  - PRODUCT QUALITY ISSUE [None]
